FAERS Safety Report 8592583-5 (Version None)
Quarter: 2012Q3

REPORT INFORMATION
  Report Type: 
  Country: None (occurrence: None)
  Receive Date: 20120814
  Receipt Date: 20120810
  Transmission Date: 20120928
  Serious: No
  Sender: FDA-Public Use
  Company Number: US-PFIZER INC-2012147526

PATIENT
  Age: 55 Year
  Sex: Female
  Weight: 97.506 kg

DRUGS (8)
  1. LYRICA [Suspect]
     Indication: FIBROMYALGIA
     Dosage: 75 MG, 2X/DAY
     Dates: start: 20110101, end: 20120301
  2. LYRICA [Suspect]
     Indication: BACK DISORDER
     Dosage: 50 MG, DAILY
     Dates: start: 20110901
  3. PROPRANOLOL [Concomitant]
     Indication: HYPERTENSION
     Dosage: 20 MG, 3X/DAY
  4. LYRICA [Suspect]
     Indication: SCIATICA
     Dosage: 50 MG, 2X/DAY
     Dates: start: 20110101, end: 20110101
  5. LISINOPRIL [Concomitant]
     Indication: HYPERTENSION
     Dosage: 10 MG, DAILY
  6. KLONOPIN [Concomitant]
     Indication: ANXIETY
     Dosage: HALF TABLET OF 2 MG, 2X/DAY
     Route: 048
  7. FLEXERIL [Concomitant]
     Indication: BACK DISORDER
     Dosage: 10 MG, AS NEEDED
  8. FLEXERIL [Concomitant]
     Indication: LIMB DISCOMFORT

REACTIONS (5)
  - LETHARGY [None]
  - DISCOMFORT [None]
  - BACK PAIN [None]
  - SOMNOLENCE [None]
  - TREMOR [None]
